FAERS Safety Report 11842051 (Version 1)
Quarter: 2015Q4

REPORT INFORMATION
  Report Type: Spontaneous
  Country: US (occurrence: US)
  Receive Date: 20151216
  Receipt Date: 20151216
  Transmission Date: 20160305
  Serious: No
  Sender: FDA-Public Use
  Company Number: US-RB-073017-15

PATIENT
  Age: 83 Year
  Sex: Male

DRUGS (1)
  1. DELSYM [Suspect]
     Active Substance: DEXTROMETHORPHAN
     Indication: COUGH
     Dosage: 10ML. AMOUNT USED: TWICE AND 10ML EACH DOSE; TOOK PRODUCT LAST ON 30-JAN-2015,FREQUENCY UNK
     Route: 065
     Dates: start: 20150129

REACTIONS (2)
  - Condition aggravated [Recovered/Resolved]
  - Throat irritation [Recovered/Resolved]

NARRATIVE: CASE EVENT DATE: 20150129
